FAERS Safety Report 17289508 (Version 1)
Quarter: 2020Q1

REPORT INFORMATION
  Report Type: Spontaneous
  Country: US (occurrence: US)
  Receive Date: 20200120
  Receipt Date: 20200120
  Transmission Date: 20200409
  Serious: No
  Sender: FDA-Public Use
  Company Number: US-HORIZON-PEN-0013-2020

PATIENT
  Sex: Male

DRUGS (1)
  1. PENNSAID [Suspect]
     Active Substance: DICLOFENAC SODIUM
     Indication: SKIN IRRITATION

REACTIONS (3)
  - Skin burning sensation [Unknown]
  - Off label use [Unknown]
  - Drug ineffective for unapproved indication [Unknown]
